FAERS Safety Report 5273289-7 (Version None)
Quarter: 2007Q1

REPORT INFORMATION
  Report Type: 
  Country: None (occurrence: None)
  Receive Date: 20070319
  Receipt Date: 20070305
  Transmission Date: 20070707
  Serious: Yes (Life-Threatening)
  Sender: FDA-Public Use
  Company Number: S07-FRA-01195-01

PATIENT
  Age: 84 Year
  Sex: Male

DRUGS (2)
  1. EBIXA (MEMANTINE HYDROCHLORIDE) [Suspect]
     Dosage: 10 MG BID PO
     Route: 048
  2. DIGOXIN [Suspect]
     Dosage: 0.12 MG QD PO
     Route: 048
     Dates: end: 20060120

REACTIONS (2)
  - BRADYCARDIA [None]
  - SYNCOPE [None]
